FAERS Safety Report 14765165 (Version 1)
Quarter: 2018Q2

REPORT INFORMATION
  Report Type: Spontaneous
  Country: PL (occurrence: PL)
  Receive Date: 20180416
  Receipt Date: 20180416
  Transmission Date: 20180711
  Serious: Yes (Other)
  Sender: FDA-Public Use
  Company Number: PL-UCBSA-2018016530

PATIENT
  Age: 42 Year
  Sex: Female

DRUGS (6)
  1. VIMPAT [Suspect]
     Active Substance: LACOSAMIDE
     Dosage: 400 MG/DAY
     Dates: start: 201602
  2. VIMPAT [Suspect]
     Active Substance: LACOSAMIDE
     Dosage: 500 MG/DAY
     Dates: start: 201701, end: 2017
  3. VIMPAT [Suspect]
     Active Substance: LACOSAMIDE
     Dosage: 350 MG/DAY
     Dates: start: 201507, end: 2016
  4. GABAPENTIN. [Concomitant]
     Active Substance: GABAPENTIN
     Indication: PRODUCT USED FOR UNKNOWN INDICATION
     Dosage: 2400 MG/DAY
     Dates: start: 201502
  5. VIMPAT [Suspect]
     Active Substance: LACOSAMIDE
     Indication: PRODUCT USED FOR UNKNOWN INDICATION
     Dosage: 300 MG/DAY
     Dates: start: 201502, end: 2015
  6. LEVETIRACETAM. [Concomitant]
     Active Substance: LEVETIRACETAM
     Indication: PRODUCT USED FOR UNKNOWN INDICATION
     Dosage: 3750 MG/DAY
     Dates: start: 201502, end: 2017

REACTIONS (6)
  - Cortical dysplasia [Unknown]
  - Partial seizures with secondary generalisation [Unknown]
  - Overdose [Unknown]
  - Dizziness [Recovered/Resolved]
  - Off label use [Unknown]
  - Partial seizures [Recovering/Resolving]

NARRATIVE: CASE EVENT DATE: 201502
